FAERS Safety Report 4317062-2 (Version None)
Quarter: 2004Q1

REPORT INFORMATION
  Report Type: 
  Country: None (occurrence: None)
  Receive Date: 20040312
  Receipt Date: 20040303
  Transmission Date: 20041129
  Serious: Yes (Life-Threatening, Hospitalization, Other)
  Sender: FDA-Public Use
  Company Number: 200311404BVD

PATIENT
  Age: 58 Year
  Sex: Female
  Weight: 77 kg

DRUGS (6)
  1. AVELOX [Suspect]
     Indication: PNEUMONIA
     Dosage: 400 MG, TOTAL DAILY, ORAL
     Route: 048
     Dates: start: 20031113, end: 20031119
  2. ATACAND [Concomitant]
  3. FELOCOR [Concomitant]
  4. BELOC ZOK [Concomitant]
  5. INDIVINA [Concomitant]
  6. CONTRACEPTIVE [Concomitant]

REACTIONS (12)
  - ACUTE RESPIRATORY DISTRESS SYNDROME [None]
  - AORTIC DISORDER [None]
  - CARDIAC ARREST [None]
  - CONFUSIONAL STATE [None]
  - DIZZINESS [None]
  - DYSPHAGIA [None]
  - HAEMATOCRIT INCREASED [None]
  - HAEMOGLOBIN INCREASED [None]
  - PNEUMONITIS [None]
  - RESPIRATORY FAILURE [None]
  - SHOCK [None]
  - SPEECH DISORDER [None]
